FAERS Safety Report 6457961-9 (Version None)
Quarter: 2009Q4

REPORT INFORMATION
  Report Type: 
  Country: None (occurrence: None)
  Receive Date: 20091125
  Receipt Date: 20091117
  Transmission Date: 20100525
  Serious: Yes (Hospitalization, Disabling, Other)
  Sender: FDA-Public Use
  Company Number: US-ABBOTT-09P-163-0597396-00

PATIENT
  Sex: Male
  Weight: 115.77 kg

DRUGS (10)
  1. HYTRIN [Suspect]
     Indication: HYPERTENSION
     Route: 048
     Dates: start: 19980101, end: 20090701
  2. HYTRIN [Suspect]
     Route: 048
     Dates: start: 20090701, end: 20090914
  3. HYTRIN [Suspect]
     Dates: start: 19980101, end: 20090914
  4. SPIRONOLACTONE [Concomitant]
     Indication: HYPERTENSION
     Route: 048
  5. SIMVASTATIN [Concomitant]
     Indication: BLOOD CHOLESTEROL INCREASED
     Route: 048
  6. LISINOPRIL [Concomitant]
     Indication: HYPERTENSION
     Route: 048
  7. ASPIRIN [Concomitant]
     Indication: CARDIOVASCULAR EVENT PROPHYLAXIS
     Route: 048
  8. CHOLESTEROL [Concomitant]
     Indication: BLOOD CHOLESTEROL INCREASED
     Dosage: 1/2 TABLET, ONE DAILY
     Route: 048
  9. AMLODIPINE [Concomitant]
     Indication: DRUG USE FOR UNKNOWN INDICATION
  10. SPINAL ANESTHESIA [Concomitant]
     Indication: DRUG USE FOR UNKNOWN INDICATION

REACTIONS (7)
  - FALL [None]
  - FIBULA FRACTURE [None]
  - HYPOKALAEMIA [None]
  - IMPAIRED WORK ABILITY [None]
  - LOSS OF CONSCIOUSNESS [None]
  - SYNCOPE [None]
  - TIBIA FRACTURE [None]
